FAERS Safety Report 7772507-0 (Version None)
Quarter: 2011Q3

REPORT INFORMATION
  Report Type: 
  Country: None (occurrence: None)
  Receive Date: 20110922
  Receipt Date: 20110712
  Transmission Date: 20111222
  Serious: No
  Sender: FDA-Public Use
  Company Number: US-ASTRAZENECA-2011SE38465

PATIENT
  Age: 67 Year
  Sex: Male

DRUGS (8)
  1. SEROQUEL XR [Suspect]
     Indication: SLEEP DISORDER
     Route: 048
     Dates: start: 20090101
  2. MORPHINE XR [Concomitant]
  3. CLONAZEPAM [Concomitant]
     Dosage: 1 MG
  4. BACLOFEN [Concomitant]
     Dosage: 20 MG
  5. MIRTAZAPINE [Concomitant]
     Dosage: 15 MG
  6. TEMAZEPAM [Concomitant]
  7. MORPHINE XR [Concomitant]
  8. SEROQUEL XR [Suspect]
     Indication: DEPRESSION
     Route: 048
     Dates: start: 20090101

REACTIONS (7)
  - THERAPEUTIC RESPONSE UNEXPECTED [None]
  - WHEELCHAIR USER [None]
  - BUNION OPERATION [None]
  - OFF LABEL USE [None]
  - ACTIVITIES OF DAILY LIVING IMPAIRED [None]
  - GASTRIC DISORDER [None]
  - BEDRIDDEN [None]
